FAERS Safety Report 18187306 (Version 3)
Quarter: 2020Q4

REPORT INFORMATION
  Report Type: Spontaneous
  Country: US (occurrence: US)
  Receive Date: 20200824
  Receipt Date: 20201005
  Transmission Date: 20210113
  Serious: No
  Sender: FDA-Public Use
  Company Number: US-PFIZER INC-2020291215

PATIENT
  Age: 62 Year
  Sex: Female
  Weight: 44.45 kg

DRUGS (1)
  1. PREMARIN [Suspect]
     Active Substance: ESTROGENS, CONJUGATED
     Indication: ATROPHIC VULVOVAGINITIS
     Dosage: UNK
     Route: 061
     Dates: start: 2019

REACTIONS (5)
  - Drug ineffective [Unknown]
  - Intentional product misuse [Unknown]
  - Product administered at inappropriate site [Unknown]
  - Pruritus [Unknown]
  - Drug hypersensitivity [Unknown]
